FAERS Safety Report 9143276 (Version 2)
Quarter: 2013Q1

REPORT INFORMATION
  Report Type: Spontaneous
  Country: JP (occurrence: JP)
  Receive Date: 20130306
  Receipt Date: 20130314
  Transmission Date: 20140127
  Serious: No
  Sender: FDA-Public Use
  Company Number: JP-PFIZER INC-2013069420

PATIENT
  Age: 71 Year
  Sex: Female

DRUGS (10)
  1. CELECOX [Suspect]
     Indication: ARTHRALGIA
     Dosage: 100 MG, 2X/DAY, AFTER BREAKFAST AND DINNER
     Route: 048
     Dates: start: 20130122, end: 20130126
  2. CELECOX [Suspect]
     Indication: PAIN IN EXTREMITY
  3. MUCOSTA [Concomitant]
     Indication: ARTHRALGIA
     Dosage: 100 MG, 2X/DAY
     Route: 048
     Dates: start: 20130122, end: 20130126
  4. SELTOUCH [Concomitant]
     Indication: ARTHRALGIA
     Dosage: UNK
     Dates: start: 20130124
  5. ENALAPRIL [Concomitant]
     Indication: HYPERTENSION
     Dosage: UNK
  6. LIPOLA M [Concomitant]
     Indication: HYPERLIPIDAEMIA
     Dosage: UNK
  7. VOGLIBOSE [Concomitant]
     Indication: DIABETES MELLITUS
     Dosage: UNK
  8. ACTONEL [Concomitant]
     Indication: OSTEOPOROSIS
     Dosage: UNK
  9. ALFAROL [Concomitant]
     Dosage: UNK
  10. NORVASC [Concomitant]
     Dosage: UNK

REACTIONS (3)
  - Lacrimation increased [Recovered/Resolved]
  - Ocular hyperaemia [Recovered/Resolved]
  - Intentional drug misuse [Unknown]
